FAERS Safety Report 13264303 (Version 1)
Quarter: 2017Q1

REPORT INFORMATION
  Report Type: Spontaneous
  Country: US (occurrence: US)
  Receive Date: 20170222
  Receipt Date: 20170222
  Transmission Date: 20170428
  Serious: Yes (Other)
  Sender: FDA-Public Use
  Company Number: None

PATIENT
  Sex: Male

DRUGS (2)
  1. JAKAFI [Suspect]
     Active Substance: RUXOLITINIB
     Indication: HAEMORRHAGE
     Dosage: 10MG 20MG QAM AND 10MG QPM PO
     Route: 048
     Dates: start: 20151118
  2. JAKAFI [Suspect]
     Active Substance: RUXOLITINIB
     Indication: ESSENTIAL THROMBOCYTHAEMIA
     Dosage: 10MG 20MG QAM AND 10MG QPM PO
     Route: 048
     Dates: start: 20151118

REACTIONS (1)
  - Anaemia [None]
